FAERS Safety Report 21760081 (Version 1)
Quarter: 2022Q4

REPORT INFORMATION
  Report Type: Spontaneous
  Country: ES (occurrence: ES)
  Receive Date: 20221221
  Receipt Date: 20221221
  Transmission Date: 20230113
  Serious: Yes (Hospitalization)
  Sender: FDA-Public Use
  Company Number: None

PATIENT
  Age: 59 Year
  Sex: Male

DRUGS (11)
  1. IRINOTECAN [Suspect]
     Active Substance: IRINOTECAN
     Indication: Pancreatic carcinoma
     Dosage: 129.0 MG EVERY 21 DAYS
     Dates: start: 20220929
  2. PYRIDOXINE HYDROCHLORIDE [Concomitant]
     Active Substance: PYRIDOXINE HYDROCHLORIDE
     Indication: Iron deficiency anaemia
     Dosage: STRENGTH: 300 MG, 20 TABLETS, 300.0 MG AT BREAKFAST
     Dates: start: 20210825
  3. CHOLECALCIFEROL [Concomitant]
     Active Substance: CHOLECALCIFEROL
     Indication: Vitamin D deficiency
     Dosage: 25,000 IU/2.5 ML ORAL SOLUTION, 4 BOTTLES OF 2.5 ML, 25000.0 IU EVERY 30 DAYS
     Dates: start: 20200930
  4. IBUPROFEN [Concomitant]
     Active Substance: IBUPROFEN
     Indication: Spinal pain
     Dosage: STRENGTH: 600 MG EFG, 40 TABLETS, 600.0 MG EVERY 12 H
     Dates: start: 20220921, end: 20221120
  5. PANCRELIPASE [Concomitant]
     Active Substance: PANCRELIPASE
     Indication: Pancreatic carcinoma
     Dosage: 35,000 U GASTRO-RESISTANT HARD CAPSULES, 100 CAPSULES.
     Dates: start: 20221011
  6. CALCIUM CARBONATE [Concomitant]
     Active Substance: CALCIUM CARBONATE
     Indication: Calcium metabolism disorder
     Dosage: STRENGTH: 1000 MG/800 IU, 30 TABLETS, 1.0 COMP AT BREAKFAST, LUNCH AND DINNER
     Dates: start: 20221011
  7. OMEPRAZOLE [Concomitant]
     Active Substance: OMEPRAZOLE
     Indication: Pancreatic carcinoma
     Dosage: 40 MG, 56 CAPSULES (BOTTLE), 40.0 MG WITH BREAKFAST
     Dates: start: 20200826
  8. OXYCODONE HYDROCHLORIDE [Concomitant]
     Active Substance: OXYCODONE HYDROCHLORIDE
     Indication: Tobacco abuse
     Dosage: STRENGTH: 20 MG,  28 CAPSULES, 20.0 MG EVERY 6 HOURS
     Dates: start: 20221011
  9. ACETAMINOPHEN [Concomitant]
     Active Substance: ACETAMINOPHEN
     Indication: Tobacco abuse
     Dosage: 1 G TABLETS EFG, 40 TABLETS, 1.0 G BREAKFAST, LUNCH AND DINNER
     Dates: start: 20220704
  10. NALOXONE HYDROCHLORIDE\OXYCODONE HYDROCHLORIDE [Concomitant]
     Active Substance: NALOXONE HYDROCHLORIDE\OXYCODONE HYDROCHLORIDE
     Indication: Tobacco abuse
     Dosage: STRENGTH: 5 MG/2.5 MG, 56 TABLETS, 5.0 MG EVERY 12 H
     Dates: start: 20221011
  11. NALOXONE HYDROCHLORIDE\OXYCODONE HYDROCHLORIDE [Concomitant]
     Active Substance: NALOXONE HYDROCHLORIDE\OXYCODONE HYDROCHLORIDE
     Indication: Iron deficiency anaemia
     Dosage: STRENGTH:40 MG/20 MG, 56 TABLETS, 40.0 MG EVERY 12 H
     Dates: start: 20220912

REACTIONS (2)
  - Hypocalcaemia [Recovered/Resolved]
  - Hypophosphataemia [Recovered/Resolved]

NARRATIVE: CASE EVENT DATE: 20221121
